FAERS Safety Report 18461461 (Version 2)
Quarter: 2021Q4

REPORT INFORMATION
  Report Type: Spontaneous
  Country: US (occurrence: US)
  Receive Date: 20201104
  Receipt Date: 20211019
  Transmission Date: 20220304
  Serious: No
  Sender: FDA-Public Use
  Company Number: US-HORIZON-2020HZN00841

PATIENT
  Sex: Male

DRUGS (3)
  1. PROCYSBI [Suspect]
     Active Substance: CYSTEAMINE BITARTRATE
     Indication: Product used for unknown indication
     Dosage: 600MG TWICE DAILY
  2. LEVOCARNITINE [Concomitant]
     Active Substance: LEVOCARNITINE
  3. INDOCIN [Concomitant]
     Active Substance: INDOMETHACIN

REACTIONS (2)
  - Nausea [Unknown]
  - Product dose omission issue [Unknown]
